FAERS Safety Report 19910057 (Version 5)
Quarter: 2022Q2

REPORT INFORMATION
  Report Type: Report from Study
  Country: US (occurrence: US)
  Receive Date: 20211003
  Receipt Date: 20220603
  Transmission Date: 20220720
  Serious: No
  Sender: FDA-Public Use
  Company Number: NVSC2021US221843

PATIENT
  Age: 44 Year
  Sex: Male

DRUGS (1)
  1. ENTRESTO [Suspect]
     Active Substance: SACUBITRIL\VALSARTAN
     Indication: Cardiac failure
     Dosage: UNK , BID
     Route: 048

REACTIONS (4)
  - Dry skin [Unknown]
  - Rash pruritic [Unknown]
  - Blood pressure decreased [Unknown]
  - Depression [Recovered/Resolved]
